FAERS Safety Report 20374252 (Version 1)
Quarter: 2022Q1

REPORT INFORMATION
  Report Type: Spontaneous
  Country: CN (occurrence: CN)
  Receive Date: 20220125
  Receipt Date: 20220125
  Transmission Date: 20220424
  Serious: Yes (Hospitalization)
  Sender: FDA-Public Use
  Company Number: CN-GLAXOSMITHKLINE-CNCH2022APC002432

PATIENT
  Age: 16 Year
  Sex: Male
  Weight: 95 kg

DRUGS (6)
  1. LORATADINE [Suspect]
     Active Substance: LORATADINE
     Indication: Viral rash
     Dosage: 10 MG, QD
  2. LAMOTRIGINE [Suspect]
     Active Substance: LAMOTRIGINE
     Indication: Depression
     Dosage: 50 MG, QD
     Route: 048
     Dates: start: 20220104, end: 20220112
  3. ACYCLOVIR [Suspect]
     Active Substance: ACYCLOVIR
     Indication: Viral rash
     Dosage: 0.4 G, QID
     Route: 048
  4. DESONIDE [Suspect]
     Active Substance: DESONIDE
     Indication: Viral rash
     Dosage: UNK, BID
  5. DEXTROSE [Suspect]
     Active Substance: DEXTROSE
     Indication: Viral rash
     Dosage: UNK, QD
  6. CALCIUM GLUCONATE [Suspect]
     Active Substance: CALCIUM GLUCONATE
     Indication: Viral rash
     Dosage: 20 ML, QD

REACTIONS (3)
  - Rash [Recovering/Resolving]
  - Viral rash [Recovering/Resolving]
  - Pruritus [Recovering/Resolving]

NARRATIVE: CASE EVENT DATE: 20220112
